FAERS Safety Report 7726697-6 (Version None)
Quarter: 2011Q3

REPORT INFORMATION
  Report Type: 
  Country: None (occurrence: None)
  Receive Date: 20110902
  Receipt Date: 20110901
  Transmission Date: 20111222
  Serious: Yes (Disabling, Other)
  Sender: FDA-Public Use
  Company Number: PHEH2007US02902

PATIENT
  Sex: Female
  Weight: 73.016 kg

DRUGS (10)
  1. IBUPROFEN [Concomitant]
  2. TOPRAL [Concomitant]
  3. FASLODEX [Concomitant]
  4. AREDIA [Suspect]
     Dosage: 90 MG, UNK
  5. DIGOXIN [Concomitant]
  6. TORSEMIDE [Concomitant]
  7. SPIRONOLACTONE [Concomitant]
  8. ARIMIDEX [Concomitant]
  9. LISINOPRIL [Concomitant]
  10. ZOMETA [Suspect]
     Dosage: 4 MG, UNK

REACTIONS (18)
  - CARDIOMEGALY [None]
  - CHEST PAIN [None]
  - ASTHMA [None]
  - PLEURAL EFFUSION [None]
  - METASTASES TO LUNG [None]
  - SPINAL DISORDER [None]
  - OSTEONECROSIS OF JAW [None]
  - PAIN IN JAW [None]
  - METASTASES TO BONE [None]
  - PAIN [None]
  - ANXIETY [None]
  - PLEURAL FIBROSIS [None]
  - TOOTH DISORDER [None]
  - GENERAL PHYSICAL HEALTH DETERIORATION [None]
  - DYSPNOEA [None]
  - CARDIAC FAILURE CONGESTIVE [None]
  - DECREASED INTEREST [None]
  - ORAL DISORDER [None]
